FAERS Safety Report 8818420 (Version 1)
Quarter: 2012Q4

REPORT INFORMATION
  Report Type: 
  Country: IN (occurrence: IN)
  Receive Date: 20121001
  Receipt Date: 20121001
  Transmission Date: 20130627
  Serious: Yes (Other)
  Sender: FDA-Public Use
  Company Number: IN-ROCHE-1138902

PATIENT

DRUGS (1)
  1. TAMIFLU [Suspect]
     Indication: H1N1 INFLUENZA

REACTIONS (5)
  - Insomnia [Unknown]
  - Mood altered [Unknown]
  - Dizziness [Unknown]
  - Vertigo [Unknown]
  - Convulsion [Unknown]
